FAERS Safety Report 5797669-6 (Version None)
Quarter: 2008Q4

REPORT INFORMATION
  Report Type: 
  Country: None (occurrence: None)
  Receive Date: 20080702
  Receipt Date: 20080623
  Transmission Date: 20090506
  Serious: Yes (Hospitalization)
  Sender: FDA-Public Use
  Company Number: BE-JNJFOC-20080605712

PATIENT
  Sex: Female
  Weight: 66 kg

DRUGS (4)
  1. DOXORUBICIN HCL [Suspect]
     Indication: OVARIAN CANCER
     Route: 042
  2. TLK286 [Suspect]
     Indication: OVARIAN CANCER
     Route: 042
  3. NEULASTA [Concomitant]
     Route: 065
  4. ALIZAPRIDE [Concomitant]
     Route: 065

REACTIONS (4)
  - ANAEMIA [None]
  - INTESTINAL OBSTRUCTION [None]
  - PYREXIA [None]
  - THROMBOCYTHAEMIA [None]
